FAERS Safety Report 7402720-3 (Version None)
Quarter: 2011Q2

REPORT INFORMATION
  Report Type: 
  Country: None (occurrence: None)
  Receive Date: 20110408
  Receipt Date: 20110329
  Transmission Date: 20111010
  Serious: Yes (Hospitalization)
  Sender: FDA-Public Use
  Company Number: US-ROCHE-760993

PATIENT
  Sex: Female

DRUGS (6)
  1. AVASTIN [Suspect]
     Dosage: DATES OF USE: 1 YEAR TO DATE
     Route: 042
     Dates: start: 20100125
  2. TAXOL [Suspect]
     Dosage: DATES OF USE: 1 YEAR TO DATE
     Route: 042
  3. OXALIPLATIN [Suspect]
     Dosage: DATES OF USE: 1 YEAR TO DATE
     Route: 042
  4. PREDNISONE [Concomitant]
  5. NEXIUM [Concomitant]
  6. COUMADIN [Concomitant]
     Dosage: 2.5 OR 5 MG DAILY

REACTIONS (2)
  - PERICARDITIS [None]
  - PLEURISY [None]
